FAERS Safety Report 6171655-9 (Version None)
Quarter: 2009Q2

REPORT INFORMATION
  Report Type: 
  Country: None (occurrence: None)
  Receive Date: 20090429
  Receipt Date: 20090424
  Transmission Date: 20091009
  Serious: Yes (Other)
  Sender: FDA-Public Use
  Company Number: US-AVENTIS-200913576US

PATIENT
  Sex: Female

DRUGS (18)
  1. LANTUS [Suspect]
     Dosage: DOSE: 73 UNITS IN AM AND 70 UNITS IN PM
     Route: 058
  2. ADVAIR HFA [Concomitant]
     Dosage: DOSE: 2 PUFFS DAILY
  3. ALBUTEROL [Concomitant]
     Dosage: DOSE: 3 TIMES A DAY VIA NEBULIZER
  4. COREG [Concomitant]
  5. CRESTOR [Concomitant]
  6. DIOVANE [Concomitant]
  7. PLAVIX [Concomitant]
  8. GLUCOPHAGE [Concomitant]
     Dosage: DOSE: 1000 MG
  9. HUMALOG [Concomitant]
     Dosage: DOSE: WITH MEALS PER CARB COUNT
  10. RANEXA [Concomitant]
  11. ZOLOFT [Concomitant]
  12. ZETIA [Concomitant]
  13. LASIX [Concomitant]
  14. PREVACID [Concomitant]
  15. NIASPAN [Concomitant]
  16. NEUROTIN                           /01003001/ [Concomitant]
  17. IMDUR [Concomitant]
  18. OXYGEN [Concomitant]
     Dosage: DOSE: 2 LITERS AS NEEDED

REACTIONS (3)
  - CEREBROVASCULAR ACCIDENT [None]
  - DEVICE FAILURE [None]
  - HYPOKINESIA [None]
